FAERS Safety Report 6340078-1 (Version None)
Quarter: 2009Q3

REPORT INFORMATION
  Report Type: 
  Country: None (occurrence: None)
  Receive Date: 20090902
  Receipt Date: 20090824
  Transmission Date: 20100115
  Serious: Yes (Death)
  Sender: FDA-Public Use
  Company Number: APP200900365

PATIENT
  Age: 50 Year
  Sex: Male

DRUGS (13)
  1. DIPRIVAN [Suspect]
     Indication: INSOMNIA
     Dosage: 50 MG, EVERY NIGHT, INTRAVENOUS DRIP; 25 MG, INTRAVENOUS DRIP; 25 MG, 10:50 AM, INTRAVENOUS DRIP
     Route: 041
  2. DIPRIVAN [Suspect]
     Indication: INSOMNIA
     Dosage: 50 MG, EVERY NIGHT, INTRAVENOUS DRIP; 25 MG, INTRAVENOUS DRIP; 25 MG, 10:50 AM, INTRAVENOUS DRIP
     Route: 041
     Dates: start: 20090623
  3. DIPRIVAN [Suspect]
     Indication: INSOMNIA
     Dosage: 50 MG, EVERY NIGHT, INTRAVENOUS DRIP; 25 MG, INTRAVENOUS DRIP; 25 MG, 10:50 AM, INTRAVENOUS DRIP
     Route: 041
     Dates: start: 20090625
  4. LORAZEPAM [Suspect]
     Indication: INSOMNIA
     Dosage: 2 MG, 2:00 AM, INTRAVENOUS; INTRAVENOUS; INTRAVENOUS
     Route: 042
     Dates: start: 20090623
  5. LORAZEPAM [Suspect]
     Indication: INSOMNIA
     Dosage: 2 MG, 2:00 AM, INTRAVENOUS; INTRAVENOUS; INTRAVENOUS
     Route: 042
     Dates: start: 20090624
  6. LORAZEPAM [Suspect]
     Indication: INSOMNIA
     Dosage: 2 MG, 2:00 AM, INTRAVENOUS; INTRAVENOUS; INTRAVENOUS
     Route: 042
     Dates: start: 20090625
  7. LORAZEPAM [Suspect]
     Indication: INSOMNIA
     Dosage: 2 MG, 2:00 AM, INTRAVENOUS; INTRAVENOUS; INTRAVENOUS
     Route: 042
     Dates: start: 20090625
  8. DIAZEPAM [Suspect]
     Indication: INSOMNIA
     Dosage: 10 MG, ONCE, ORAL
     Route: 048
     Dates: start: 20090625
  9. MIDAZOLAM HYDROCHLORIDE [Suspect]
     Indication: INSOMNIA
     Dosage: 2 MG, 3:00 AM, INTRAVENOUS; INTRAVENOUS; INTRAVENOUS
     Route: 042
     Dates: start: 20090623
  10. MIDAZOLAM HYDROCHLORIDE [Suspect]
     Indication: INSOMNIA
     Dosage: 2 MG, 3:00 AM, INTRAVENOUS; INTRAVENOUS; INTRAVENOUS
     Route: 042
     Dates: start: 20090624
  11. MIDAZOLAM HYDROCHLORIDE [Suspect]
     Indication: INSOMNIA
     Dosage: 2 MG, 3:00 AM, INTRAVENOUS; INTRAVENOUS; INTRAVENOUS
     Route: 042
     Dates: start: 20090625
  12. MIDAZOLAM HYDROCHLORIDE [Suspect]
     Indication: INSOMNIA
     Dosage: 2 MG, 3:00 AM, INTRAVENOUS; INTRAVENOUS; INTRAVENOUS
     Route: 042
     Dates: start: 20090625
  13. XYLOCAINE [Suspect]
     Indication: BURNING SENSATION
     Dosage: MIXED WITH PROPOFOL

REACTIONS (3)
  - CARDIAC ARREST [None]
  - DRUG TOXICITY [None]
  - RESPIRATORY ARREST [None]
